FAERS Safety Report 14900769 (Version 1)
Quarter: 2018Q2

REPORT INFORMATION
  Report Type: Spontaneous
  Country: US (occurrence: US)
  Receive Date: 20180516
  Receipt Date: 20180516
  Transmission Date: 20180711
  Serious: No
  Sender: FDA-Public Use
  Company Number: US-PFIZER INC-2018201066

PATIENT
  Age: 54 Year
  Sex: Female

DRUGS (2)
  1. GABAPENTIN. [Suspect]
     Active Substance: GABAPENTIN
     Dosage: 2 DF, 2X/DAY (TWO PILLS IN THE MORNING AND TWO AT NIGHT)
  2. GABAPENTIN. [Suspect]
     Active Substance: GABAPENTIN
     Dosage: 8 DF, DAILY (THREES IN THE MORNING, TWO IN MIDDAY, AND THREE AT NIGHT)

REACTIONS (1)
  - Drug ineffective [Unknown]
